FAERS Safety Report 14497866 (Version 1)
Quarter: 2018Q1

REPORT INFORMATION
  Report Type: Spontaneous
  Country: US (occurrence: US)
  Receive Date: 20180206
  Receipt Date: 20180206
  Transmission Date: 20180509
  Serious: No
  Sender: FDA-Public Use
  Company Number: None

PATIENT
  Age: 16 Year
  Sex: Female
  Weight: 55.8 kg

DRUGS (7)
  1. ESCITALOPRAM [Suspect]
     Active Substance: ESCITALOPRAM OXALATE
     Indication: DEPRESSION
     Dosage: QUANTITY:1 TABLET(S); AT BEDTIME?
     Route: 048
     Dates: start: 20171117
  2. BIOTIN [Concomitant]
     Active Substance: BIOTIN
  3. VITAMIN C [Concomitant]
     Active Substance: ASCORBIC ACID
  4. FOLIC ACID. [Concomitant]
     Active Substance: FOLIC ACID
  5. ESCITALOPRAM [Suspect]
     Active Substance: ESCITALOPRAM OXALATE
     Indication: ANXIETY
     Dosage: QUANTITY:1 TABLET(S); AT BEDTIME?
     Route: 048
     Dates: start: 20171117
  6. VITAMIN D [Concomitant]
     Active Substance: CHOLECALCIFEROL
  7. MULTIVITAMIN [Concomitant]
     Active Substance: VITAMINS

REACTIONS (2)
  - Sleep disorder [None]
  - Drug dose omission [None]
